FAERS Safety Report 7879744-5 (Version None)
Quarter: 2011Q4

REPORT INFORMATION
  Report Type: 
  Country: None (occurrence: None)
  Receive Date: 20111101
  Receipt Date: 20111024
  Transmission Date: 20120403
  Serious: Yes (Other)
  Sender: FDA-Public Use
  Company Number: US-US-EMD SERONO, INC.-7091762

PATIENT
  Sex: Male

DRUGS (3)
  1. BENADRYL [Concomitant]
     Indication: RESTLESS LEGS SYNDROME
  2. REBIF [Suspect]
     Indication: MULTIPLE SCLEROSIS
     Route: 058
     Dates: start: 20110715
  3. TYLENOL PM [Concomitant]
     Indication: RESTLESS LEGS SYNDROME

REACTIONS (1)
  - STAPHYLOCOCCAL INFECTION [None]
